FAERS Safety Report 18509663 (Version 3)
Quarter: 2021Q3

REPORT INFORMATION
  Report Type: Spontaneous
  Country: US (occurrence: US)
  Receive Date: 20201117
  Receipt Date: 20210707
  Transmission Date: 20211014
  Serious: Yes (Other)
  Sender: FDA-Public Use
  Company Number: US-SA-2020SA322025

PATIENT
  Age: 56 Year
  Sex: Male

DRUGS (2)
  1. ZANTAC [Suspect]
     Active Substance: RANITIDINE HYDROCHLORIDE
     Indication: ABDOMINAL DISCOMFORT
  2. ZANTAC [Suspect]
     Active Substance: RANITIDINE HYDROCHLORIDE
     Indication: DYSPEPSIA
     Dosage: UNK, FREQUENCY : OCCASIONAL
     Dates: start: 200101, end: 201101

REACTIONS (2)
  - Colorectal cancer stage IV [Unknown]
  - Hepatic cancer stage IV [Unknown]

NARRATIVE: CASE EVENT DATE: 20170201
